FAERS Safety Report 6427445-2 (Version None)
Quarter: 2009Q4

REPORT INFORMATION
  Report Type: 
  Country: None (occurrence: None)
  Receive Date: 20091030
  Receipt Date: 20091021
  Transmission Date: 20100525
  Serious: Yes (Other)
  Sender: FDA-Public Use
  Company Number: 1-20482354

PATIENT
  Age: 16 Year
  Sex: Male

DRUGS (5)
  1. SOLODYN ER TABLET 90 MG [Suspect]
     Indication: ACNE
     Dosage: 90 MG ONCE DAILY, ORAL
     Route: 048
     Dates: start: 20090322
  2. CONCERTA [Concomitant]
  3. CITALOPRAM [Concomitant]
  4. PLEXION (SODIUM SULFACETAMIDE 10% AND SULFUR 5%) CREAM [Concomitant]
  5. TAZORAC [Concomitant]

REACTIONS (2)
  - CONVULSION [None]
  - INCORRECT DOSE ADMINISTERED [None]
